FAERS Safety Report 5450696-0 (Version None)
Quarter: 2007Q3

REPORT INFORMATION
  Report Type: 
  Country: None (occurrence: None)
  Receive Date: 20070910
  Receipt Date: 20070831
  Transmission Date: 20080115
  Serious: Yes (Hospitalization, Other)
  Sender: FDA-Public Use
  Company Number: 2007RL000348

PATIENT
  Age: 58 Year
  Sex: Female
  Weight: 67.1324 kg

DRUGS (6)
  1. LOVAZA [Suspect]
     Indication: BLOOD TRIGLYCERIDES INCREASED
     Dosage: 1 GM; BID; PO
     Route: 048
     Dates: start: 20060101
  2. NEXIUM [Concomitant]
  3. SEREVENT [Concomitant]
  4. CELEBREX [Concomitant]
  5. KLONOPIN [Concomitant]
  6. BENADRYL [Concomitant]

REACTIONS (6)
  - BLOOD PRESSURE DECREASED [None]
  - DIZZINESS [None]
  - LOSS OF CONSCIOUSNESS [None]
  - THERAPEUTIC RESPONSE UNEXPECTED [None]
  - THINKING ABNORMAL [None]
  - WEIGHT DECREASED [None]
